FAERS Safety Report 22370424 (Version 1)
Quarter: 2023Q2

REPORT INFORMATION
  Report Type: Spontaneous
  Country: JP (occurrence: JP)
  Receive Date: 20230526
  Receipt Date: 20230526
  Transmission Date: 20230721
  Serious: Yes (Death, Other)
  Sender: FDA-Public Use
  Company Number: JP-GILEAD-2023-0629395

PATIENT
  Age: 75 Year
  Sex: Male

DRUGS (2)
  1. VEKLURY [Suspect]
     Active Substance: REMDESIVIR
     Indication: COVID-19
     Dosage: UNK
     Route: 065
  2. DEXAMETHASONE [Concomitant]
     Active Substance: DEXAMETHASONE
     Indication: COVID-19
     Dosage: UNK

REACTIONS (8)
  - Pulmonary haemorrhage [Fatal]
  - Bradycardia [Unknown]
  - Diffuse alveolar damage [Unknown]
  - Pulmonary fibrosis [Unknown]
  - Thrombosis [Unknown]
  - Lung opacity [Unknown]
  - Pyrexia [Unknown]
  - Oxygen saturation decreased [Unknown]
